FAERS Safety Report 10388752 (Version 1)
Quarter: 2014Q1

REPORT INFORMATION
  Report Type: Spontaneous
  Country: US (occurrence: None)
  Receive Date: 20140306
  Receipt Date: 20140306
  Transmission Date: 20141002
  Serious: Yes (Hospitalization)
  Sender: FDA-Public Use
  Company Number: 163-21880-13123864

PATIENT
  Age: 65 Year
  Sex: Male
  Weight: 99.8 kg

DRUGS (9)
  1. REVLIMID (LENALIDOMIDE) (10 MILLIGRAM, CAPSULES) [Suspect]
     Indication: PLASMA CELL MYELOMA
     Dosage: 10MG, 21 IN 28 D, PO
     Route: 048
     Dates: start: 201111
  2. LISINOPRIL [Concomitant]
  3. METFORMIN HCL [Concomitant]
  4. MULTIVITAMINS [Concomitant]
  5. CALCIUM CITRATE [Concomitant]
  6. GLUCOSAMINE CHONDROITIN (GLUCOSAMINE W/ CHONDROITIN SULFATE) [Concomitant]
  7. GRIS-PEG (GRISEFULVIN) [Concomitant]
  8. LEVOTHYROXINE SODIUM [Concomitant]
  9. AVODART (DUTASTERIDE) CAPSULES [Concomitant]

REACTIONS (2)
  - Pulmonary thrombosis [None]
  - Thrombosis [None]
